FAERS Safety Report 9602905 (Version 4)
Quarter: 2014Q1

REPORT INFORMATION
  Report Type: Spontaneous
  Country: CO (occurrence: CO)
  Receive Date: 20131007
  Receipt Date: 20140124
  Transmission Date: 20141002
  Serious: Yes (Death, Hospitalization, Other)
  Sender: FDA-Public Use
  Company Number: CO-BAXTER-2013BAX038279

PATIENT
  Age: 80 Year
  Sex: Female
  Weight: 45 kg

DRUGS (3)
  1. AGUA ESTERIL PARA INYECCION USP [Suspect]
     Indication: OXYGEN SUPPLEMENTATION
     Route: 055
     Dates: start: 20130915, end: 20130926
  2. AGUA ESTERIL PARA INYECCION USP [Suspect]
     Indication: STOMA CARE
  3. HYDROCORTISONE [Concomitant]
     Indication: PRODUCT USED FOR UNKNOWN INDICATION
     Route: 042

REACTIONS (3)
  - Upper respiratory tract infection bacterial [Fatal]
  - Pneumonia [Fatal]
  - Death [Fatal]
